FAERS Safety Report 18706177 (Version 1)
Quarter: 2021Q1

REPORT INFORMATION
  Report Type: Spontaneous
  Country: PT (occurrence: PT)
  Receive Date: 20210106
  Receipt Date: 20210106
  Transmission Date: 20210419
  Serious: Yes (Other)
  Sender: FDA-Public Use
  Company Number: NVSC2020PT343555

PATIENT
  Age: 64 Year
  Sex: Male

DRUGS (1)
  1. OLMESARTAN MEDOXOMIL. [Suspect]
     Active Substance: OLMESARTAN MEDOXOMIL
     Indication: HYPERTENSION
     Dosage: UNK
     Route: 065

REACTIONS (20)
  - Dysplasia [Recovered/Resolved]
  - Mucosal hyperaemia [Recovered/Resolved]
  - Nausea [Recovered/Resolved]
  - Lymphocytic infiltration [Recovered/Resolved]
  - Mucosal atrophy [Recovered/Resolved]
  - Sprue-like enteropathy [Recovered/Resolved]
  - Dehydration [Recovered/Resolved]
  - Weight decreased [Recovered/Resolved]
  - Hypokalaemia [Recovered/Resolved]
  - Ileal ulcer [Recovered/Resolved]
  - Intestinal intraepithelial lymphocytes increased [Recovered/Resolved]
  - Colitis microscopic [Recovered/Resolved]
  - Gastrointestinal disorder [Recovered/Resolved]
  - Intestinal ulcer [Recovered/Resolved]
  - Decreased appetite [Recovered/Resolved]
  - Microvillous inclusion disease [Recovered/Resolved]
  - Vomiting [Recovered/Resolved]
  - Faecal calprotectin increased [Recovered/Resolved]
  - Diarrhoea [Recovered/Resolved]
  - Atrophy [Recovered/Resolved]
